FAERS Safety Report 9187955 (Version 1)
Quarter: 2013Q1

REPORT INFORMATION
  Report Type: Spontaneous
  Country: US (occurrence: US)
  Receive Date: 20130325
  Receipt Date: 20130325
  Transmission Date: 20140127
  Serious: No
  Sender: FDA-Public Use
  Company Number: US-MYLANLABS-2012S1020617

PATIENT
  Age: 50 Year
  Sex: Female
  Weight: 46.72 kg

DRUGS (7)
  1. FENTANYL TRANSDERMAL SYSTEM [Suspect]
     Indication: PAIN
     Dosage: Q3D
     Route: 062
  2. ESTRADIOL TRANSDERMAL SYSTEM [Concomitant]
     Indication: HORMONE REPLACEMENT THERAPY
     Route: 062
  3. LIDODERM [Concomitant]
     Indication: PAIN
     Route: 062
  4. OXYCODONE [Concomitant]
     Indication: BREAKTHROUGH PAIN
  5. ZOFRAN [Concomitant]
  6. LASIX [Concomitant]
  7. SINGULAR [Concomitant]

REACTIONS (3)
  - Application site rash [Not Recovered/Not Resolved]
  - Application site erosion [Not Recovered/Not Resolved]
  - Application site burn [Not Recovered/Not Resolved]
